FAERS Safety Report 19379543 (Version 3)
Quarter: 2021Q3

REPORT INFORMATION
  Report Type: Report from Study
  Country: DE (occurrence: DE)
  Receive Date: 20210607
  Receipt Date: 20210808
  Transmission Date: 20211014
  Serious: Yes (Hospitalization, Other)
  Sender: FDA-Public Use
  Company Number: DE-CELLTRION INC.-2021DE007479

PATIENT

DRUGS (1)
  1. TRUXIMA [Suspect]
     Active Substance: RITUXIMAB-ABBS
     Indication: B-CELL LYMPHOMA
     Dosage: 740 MG ON DAY 1 OF EACH CYCLE
     Route: 042
     Dates: start: 20191010

REACTIONS (16)
  - Anal haemorrhage [Recovered/Resolved]
  - Constipation [Not Recovered/Not Resolved]
  - Fistula [Recovered/Resolved]
  - Weight decreased [Not Recovered/Not Resolved]
  - White blood cell count decreased [Recovered/Resolved]
  - Anxiety [Not Recovered/Not Resolved]
  - Influenza like illness [Recovered/Resolved]
  - Mucosal inflammation [Recovered/Resolved]
  - Depression [Unknown]
  - Chills [Unknown]
  - Paraesthesia [Unknown]
  - Vomiting [Recovered/Resolved]
  - Fatigue [Unknown]
  - Dry eye [Recovered/Resolved]
  - Abdominal pain upper [Not Recovered/Not Resolved]
  - Dehydration [Recovered/Resolved]

NARRATIVE: CASE EVENT DATE: 20100206
